FAERS Safety Report 17746237 (Version 1)
Quarter: 2020Q2

REPORT INFORMATION
  Report Type: Spontaneous
  Country: CH (occurrence: CH)
  Receive Date: 20200505
  Receipt Date: 20200505
  Transmission Date: 20200714
  Serious: Yes (Other)
  Sender: FDA-Public Use
  Company Number: NVSC2019CH090958

PATIENT

DRUGS (4)
  1. MEKINIST [Concomitant]
     Active Substance: TRAMETINIB DIMETHYL SULFOXIDE
     Indication: ASTROCYTOMA, LOW GRADE
     Dosage: UNK UKN
     Route: 065
  2. TAFINLAR [Suspect]
     Active Substance: DABRAFENIB MESYLATE
     Indication: ASTROCYTOMA, LOW GRADE
     Dosage: UNK UKN
     Route: 065
     Dates: start: 201805
  3. IRINOTECAN [Suspect]
     Active Substance: IRINOTECAN
     Indication: ASTROCYTOMA, LOW GRADE
     Dosage: UNK UKN
     Route: 065
     Dates: start: 20170608, end: 20180403
  4. AVASTIN [Concomitant]
     Active Substance: BEVACIZUMAB
     Indication: ASTROCYTOMA, LOW GRADE
     Dosage: UNK UKN
     Route: 065
     Dates: start: 20170608, end: 20180403

REACTIONS (3)
  - Astrocytoma, low grade [Recovering/Resolving]
  - Product use in unapproved indication [Unknown]
  - Malignant neoplasm progression [Recovering/Resolving]

NARRATIVE: CASE EVENT DATE: 201803
